FAERS Safety Report 13246486 (Version 1)
Quarter: 2017Q1

REPORT INFORMATION
  Report Type: Report from Study
  Country: US (occurrence: US)
  Receive Date: 20170217
  Receipt Date: 20170217
  Transmission Date: 20170428
  Serious: Yes (Death, Other)
  Sender: FDA-Public Use
  Company Number: US-PFIZER INC-2017070072

PATIENT

DRUGS (3)
  1. CETUXIMAB. [Suspect]
     Active Substance: CETUXIMAB
     Indication: NEOPLASM MALIGNANT
     Dosage: UNK
  2. SERIBANTUMAB [Suspect]
     Active Substance: SERIBANTUMAB
     Indication: NEOPLASM MALIGNANT
     Dosage: UNK
  3. IRINOTECAN HCL [Suspect]
     Active Substance: IRINOTECAN HYDROCHLORIDE
     Indication: NEOPLASM MALIGNANT
     Dosage: 180 MG/M2, CYCLIC (EVERY 2 WEEKS)
     Route: 041

REACTIONS (6)
  - Respiratory failure [Fatal]
  - Neutropenia [Unknown]
  - Cardiac arrest [Unknown]
  - Diarrhoea [Unknown]
  - Dehydration [Unknown]
  - Urinary tract infection [Unknown]
